FAERS Safety Report 17777638 (Version 1)
Quarter: 2020Q2

REPORT INFORMATION
  Report Type: Spontaneous
  Country: US (occurrence: US)
  Receive Date: 20200513
  Receipt Date: 20200513
  Transmission Date: 20200714
  Serious: No
  Sender: FDA-Public Use
  Company Number: US-VANDA PHARMACEUTICALS, INC-2019ILOUS001773

PATIENT
  Sex: Male

DRUGS (2)
  1. FANAPT [Suspect]
     Active Substance: ILOPERIDONE
     Indication: SCHIZOPHRENIA
     Dosage: 2 MG, QD (SAMPLES)
     Route: 048
     Dates: start: 20190924, end: 20190928
  2. FANAPT [Suspect]
     Active Substance: ILOPERIDONE
     Dosage: 12MG, QD (2X6MG TABLETS)
     Dates: start: 20190928, end: 20190929

REACTIONS (3)
  - Nausea [Not Recovered/Not Resolved]
  - Fatigue [Not Recovered/Not Resolved]
  - Extraocular muscle paresis [Not Recovered/Not Resolved]
